FAERS Safety Report 25518434 (Version 1)
Quarter: 2025Q3

REPORT INFORMATION
  Report Type: Other
  Country: CA (occurrence: CA)
  Receive Date: 20250704
  Receipt Date: 20250704
  Transmission Date: 20251020
  Serious: Yes (Hospitalization, Other)
  Sender: APOTEX
  Company Number: CA-PGRTD-E2B_07725736

PATIENT
  Age: 41 Year
  Sex: Male

DRUGS (11)
  1. LEVOFLOXACIN [Suspect]
     Active Substance: LEVOFLOXACIN
     Indication: Testicular swelling
     Route: 065
  2. LEVOFLOXACIN [Suspect]
     Active Substance: LEVOFLOXACIN
     Indication: Orchitis
  3. PREDNISONE [Suspect]
     Active Substance: PREDNISONE
     Indication: Product used for unknown indication
     Route: 065
  4. FOLIC ACID [Suspect]
     Active Substance: FOLIC ACID
     Indication: Product used for unknown indication
     Route: 065
  5. ENTYVIO [Suspect]
     Active Substance: VEDOLIZUMAB
     Indication: Crohn^s disease
     Route: 042
  6. ENTYVIO [Suspect]
     Active Substance: VEDOLIZUMAB
     Route: 042
  7. PENTASA [Suspect]
     Active Substance: MESALAMINE
     Indication: Product used for unknown indication
     Route: 065
  8. METHOTREXATE [Concomitant]
     Active Substance: METHOTREXATE
     Route: 065
  9. BUTYLSCOPOLAMINE BROMIDE [Concomitant]
     Active Substance: BUTYLSCOPOLAMINE BROMIDE
     Route: 065
  10. IRON [Concomitant]
     Active Substance: IRON
     Route: 065
  11. UROFOLLITROPIN [Concomitant]
     Active Substance: UROFOLLITROPIN
     Route: 065

REACTIONS (14)
  - Orchitis [Recovering/Resolving]
  - Pain [Recovering/Resolving]
  - Pyrexia [Recovering/Resolving]
  - Diarrhoea [Recovering/Resolving]
  - Anaemia [Recovering/Resolving]
  - Abdominal discomfort [Recovering/Resolving]
  - Treatment failure [Recovering/Resolving]
  - Haematochezia [Recovering/Resolving]
  - Cholangitis sclerosing [Recovering/Resolving]
  - Anal stenosis [Recovering/Resolving]
  - Gastrointestinal inflammation [Recovering/Resolving]
  - Faeces hard [Recovering/Resolving]
  - Interleukin level increased [Recovering/Resolving]
  - Lactose intolerance [Recovering/Resolving]
